FAERS Safety Report 7405764-0 (Version None)
Quarter: 2011Q2

REPORT INFORMATION
  Report Type: 
  Country: None (occurrence: None)
  Receive Date: 20110411
  Receipt Date: 20110401
  Transmission Date: 20111010
  Serious: Yes (Other)
  Sender: FDA-Public Use
  Company Number: CN-ROCHE-768960

PATIENT
  Sex: Female

DRUGS (4)
  1. PACLITAXEL [Suspect]
     Indication: BREAST CANCER
     Route: 042
     Dates: start: 20100401, end: 20100623
  2. TRASTUZUMAB [Suspect]
     Route: 042
     Dates: start: 20100331
  3. TRASTUZUMAB [Suspect]
     Indication: BREAST CANCER
     Route: 042
  4. ANASTROZOLE [Suspect]
     Indication: ENDOCRINE DISORDER
     Route: 048
     Dates: start: 20100914

REACTIONS (1)
  - HYPERURICAEMIA [None]
